FAERS Safety Report 13371542 (Version 3)
Quarter: 2017Q2

REPORT INFORMATION
  Report Type: Report from Study
  Country: None (occurrence: US)
  Receive Date: 20170324
  Receipt Date: 20170417
  Transmission Date: 20170830
  Serious: Yes (Hospitalization, Other)
  Sender: FDA-Public Use
  Company Number: US-ABBVIE-17K-163-1865601-00

PATIENT
  Age: 77 Year
  Sex: Female

DRUGS (11)
  1. HUMIRA [Suspect]
     Active Substance: ADALIMUMAB
     Indication: COLITIS ULCERATIVE
     Route: 058
     Dates: start: 20140806
  2. CYMBALTA [Concomitant]
     Active Substance: DULOXETINE HYDROCHLORIDE
     Indication: PRODUCT USED FOR UNKNOWN INDICATION
  3. PROTONIX [Concomitant]
     Active Substance: PANTOPRAZOLE SODIUM
     Indication: PRODUCT USED FOR UNKNOWN INDICATION
  4. COREG [Concomitant]
     Active Substance: CARVEDILOL
     Indication: PRODUCT USED FOR UNKNOWN INDICATION
  5. BUDESONIDE. [Concomitant]
     Active Substance: BUDESONIDE
     Indication: PRODUCT USED FOR UNKNOWN INDICATION
  6. LORAZAPM [Concomitant]
     Indication: PRODUCT USED FOR UNKNOWN INDICATION
  7. RIFAXIMIN [Concomitant]
     Active Substance: RIFAXIMIN
     Indication: PRODUCT USED FOR UNKNOWN INDICATION
  8. SYNTHROID [Concomitant]
     Active Substance: LEVOTHYROXINE SODIUM
     Indication: PRODUCT USED FOR UNKNOWN INDICATION
  9. HUMIRA [Suspect]
     Active Substance: ADALIMUMAB
     Route: 058
     Dates: start: 201404, end: 20170228
  10. PLAVIX [Concomitant]
     Active Substance: CLOPIDOGREL BISULFATE
     Indication: PRODUCT USED FOR UNKNOWN INDICATION
  11. FLORASTOR [Concomitant]
     Active Substance: SACCHAROMYCES CEREVISIAE
     Indication: PRODUCT USED FOR UNKNOWN INDICATION

REACTIONS (22)
  - Arthritis infective [Not Recovered/Not Resolved]
  - Dehydration [Recovered/Resolved]
  - Urinary tract infection [Recovering/Resolving]
  - Pain [Recovered/Resolved]
  - Joint warmth [Not Recovered/Not Resolved]
  - Staphylococcal infection [Recovering/Resolving]
  - Vomiting [Recovered/Resolved]
  - Fatigue [Recovered/Resolved]
  - Erythema [Recovered/Resolved]
  - Acute kidney injury [Recovered/Resolved]
  - Post procedural infection [Not Recovered/Not Resolved]
  - Swelling [Recovered/Resolved]
  - Arthritis [Recovered/Resolved]
  - Joint swelling [Not Recovered/Not Resolved]
  - Pancreatitis acute [Recovered/Resolved]
  - Diarrhoea [Recovered/Resolved]
  - Arthritis [Recovered/Resolved]
  - Device related infection [Recovered/Resolved]
  - Asthenia [Recovered/Resolved]
  - Clostridium difficile infection [Recovered/Resolved]
  - Nausea [Recovered/Resolved]
  - Pain [Recovered/Resolved]

NARRATIVE: CASE EVENT DATE: 2016
